FAERS Safety Report 18800829 (Version 2)
Quarter: 2021Q4

REPORT INFORMATION
  Report Type: Spontaneous
  Country: JP (occurrence: JP)
  Receive Date: 20210128
  Receipt Date: 20211027
  Transmission Date: 20220303
  Serious: Yes (Hospitalization, Other)
  Sender: FDA-Public Use
  Company Number: JP-BAYER-2021-038280

PATIENT
  Age: 68 Year
  Sex: Female

DRUGS (1)
  1. STIVARGA [Suspect]
     Active Substance: REGORAFENIB
     Indication: Colon cancer recurrent
     Dosage: 160 MG, QD
     Route: 048

REACTIONS (3)
  - Immune thrombocytopenia [Recovered/Resolved]
  - Haematemesis [Recovered/Resolved]
  - Thrombocytopenia [Recovered/Resolved]
